FAERS Safety Report 11248050 (Version 1)
Quarter: 2015Q3

REPORT INFORMATION
  Report Type: Spontaneous
  Country: GB (occurrence: GB)
  Receive Date: 20150708
  Receipt Date: 20150708
  Transmission Date: 20151125
  Serious: Yes (Life-Threatening, Hospitalization, Other)
  Sender: FDA-Public Use
  Company Number: GB-BRISTOL-MYERS SQUIBB COMPANY-BMS-2015-043983

PATIENT
  Age: 89 Year
  Sex: Female
  Weight: 54 kg

DRUGS (4)
  1. ELIQUIS [Suspect]
     Active Substance: APIXABAN
     Indication: CEREBROVASCULAR ACCIDENT PROPHYLAXIS
     Route: 048
     Dates: start: 201503, end: 20150611
  2. SIMVASTATIN. [Concomitant]
     Active Substance: SIMVASTATIN
     Indication: BLOOD CHOLESTEROL INCREASED
     Route: 048
  3. ALENDRONIC ACID [Concomitant]
     Active Substance: ALENDRONIC ACID
     Indication: PRODUCT USED FOR UNKNOWN INDICATION
     Dosage: 70 MG, QWK
     Route: 048
  4. PERINDOPRIL [Concomitant]
     Active Substance: PERINDOPRIL
     Indication: HYPERTENSION
     Route: 048

REACTIONS (3)
  - Cerebral haemorrhage [Recovering/Resolving]
  - Seizure [Recovering/Resolving]
  - Fall [Recovering/Resolving]

NARRATIVE: CASE EVENT DATE: 20150610
